FAERS Safety Report 14218607 (Version 1)
Quarter: 2017Q4

REPORT INFORMATION
  Report Type: Report from Study
  Country: US (occurrence: US)
  Receive Date: 20171123
  Receipt Date: 20171123
  Transmission Date: 20180321
  Serious: No
  Sender: FDA-Public Use
  Company Number: US-ALEXION PHARMACEUTICALS INC.-A201712186

PATIENT
  Age: 5 Year
  Sex: Female

DRUGS (1)
  1. SOLIRIS [Suspect]
     Active Substance: ECULIZUMAB
     Indication: ATYPICAL HAEMOLYTIC URAEMIC SYNDROME
     Dosage: 600 MG,
     Route: 042
     Dates: start: 20130219

REACTIONS (2)
  - Hypoacusis [Unknown]
  - Speech disorder [Unknown]

NARRATIVE: CASE EVENT DATE: 20171024
